FAERS Safety Report 19786398 (Version 1)
Quarter: 2021Q3

REPORT INFORMATION
  Report Type: Spontaneous
  Country: CO (occurrence: CO)
  Receive Date: 20210903
  Receipt Date: 20210903
  Transmission Date: 20211014
  Serious: Yes (Other)
  Sender: FDA-Public Use
  Company Number: CO-AMGEN-COLSP2021133554

PATIENT
  Age: 33 Year
  Sex: Female
  Weight: 64 kg

DRUGS (6)
  1. MVASI [Suspect]
     Active Substance: BEVACIZUMAB-AWWB
     Indication: ASTROCYTOMA
  2. DEXAMETHASONE PHOSPHATE [Concomitant]
     Active Substance: DEXAMETHASONE PHOSPHATE
     Indication: ASTROCYTOMA
     Dosage: 4 MILLIGRAM PER MILLILITRE, QD
     Route: 042
     Dates: start: 20210505
  3. TRIMETHOPRIM SULFAMETHOXAZOLE [Concomitant]
     Active Substance: SULFAMETHOXAZOLE\TRIMETHOPRIM
     Dosage: (160+800) MG TABLET (1 TABLET EVERY 1 DAY(S) FOR 20 DAY(S))
     Route: 048
     Dates: start: 20210628
  4. MVASI [Suspect]
     Active Substance: BEVACIZUMAB-AWWB
     Indication: OFF LABEL USE
     Dosage: 975 MILLIGRAM, QD
     Route: 042
     Dates: start: 20210505
  5. TEMOZOLOMIDE. [Concomitant]
     Active Substance: TEMOZOLOMIDE
     Dosage: 20 MILLIGRAM, QD (3 CAPSULE EVERY 1 DAY(S) FOR 21 DAY(S))
     Route: 048
     Dates: start: 20210628
  6. ONDANSETRON [Concomitant]
     Active Substance: ONDANSETRON
     Dosage: 8 MILLIGRAM, TID (1 TABLET EVERY 8 HOUR(S) FOR 15 DAY(S))
     Route: 048
     Dates: start: 20210628

REACTIONS (5)
  - Off label use [Not Recovered/Not Resolved]
  - Seizure [Recovered/Resolved]
  - Decreased appetite [Not Recovered/Not Resolved]
  - Dysphagia [Not Recovered/Not Resolved]
  - Depression [Not Recovered/Not Resolved]

NARRATIVE: CASE EVENT DATE: 20210505
